FAERS Safety Report 4427846-8 (Version None)
Quarter: 2004Q3

REPORT INFORMATION
  Report Type: 
  Country: None (occurrence: None)
  Receive Date: 20040812
  Receipt Date: 20040802
  Transmission Date: 20050211
  Serious: Yes (Hospitalization)
  Sender: FDA-Public Use
  Company Number: K200401149

PATIENT
  Age: 66 Year
  Sex: Male

DRUGS (12)
  1. ALTACE [Suspect]
     Indication: HYPERTENSION
     Dosage: 10 MG, QD, ORAL
     Route: 048
     Dates: start: 20021101, end: 20031119
  2. ALTACE [Suspect]
     Indication: HYPERTENSION
     Dosage: 10 MG, QD, ORAL
     Route: 048
     Dates: start: 20031127
  3. AQUAPHOR TABLET (XIPAMIDE) TABLET, 40MG [Suspect]
     Indication: HYPERTENSION
     Dosage: 40 MG, QD, ORAL
     Route: 048
     Dates: start: 20021101, end: 20031119
  4. TOREM (TORASEMIDE) TABLET, 50MG [Suspect]
     Indication: HYPERTENSION
     Dosage: 50 MG, QD, ORAL
     Route: 048
     Dates: start: 20021101, end: 20031119
  5. TOREM (TORASEMIDE) TABLET, 50MG [Suspect]
     Indication: HYPERTENSION
     Dosage: 50 MG, QD, ORAL
     Route: 048
     Dates: start: 20031123
  6. CORDAREX (AMIODARONE HYDROCHLORIDE) TABLET, 200MG [Suspect]
     Indication: ATRIAL FIBRILLATION
     Dosage: 200 MG, QD, ORAL
     Route: 048
     Dates: start: 20021101
  7. ALLOPURINOL [Concomitant]
  8. AMARYL [Concomitant]
  9. CONCOR (BISOPROLOL FUMARATE) TABLET [Concomitant]
  10. DIGITOXIN (DIGITOXIN) TABLET [Concomitant]
  11. FALITHROM ^FAHLBERG^ (PHENPROCOUMON) TABLET [Concomitant]
  12. SORTIS ^GOEDECKE^ (ATORVASTATIN CALCIUM) TABLET [Concomitant]

REACTIONS (6)
  - DECREASED APPETITE [None]
  - DIARRHOEA [None]
  - DRUG INTERACTION [None]
  - METABOLIC ACIDOSIS [None]
  - RENAL FAILURE ACUTE [None]
  - VOMITING [None]
